FAERS Safety Report 10158200 (Version 4)
Quarter: 2014Q3

REPORT INFORMATION
  Report Type: Report from Study
  Country: CA (occurrence: CA)
  Receive Date: 20140507
  Receipt Date: 20140730
  Transmission Date: 20150326
  Serious: Yes (Hospitalization)
  Sender: FDA-Public Use
  Company Number: CA-BRISTOL-MYERS SQUIBB COMPANY-19447218

PATIENT
  Age: 64 Year
  Sex: Male

DRUGS (4)
  1. PREDNISONE. [Concomitant]
     Active Substance: PREDNISONE
  2. ORENCIA [Suspect]
     Active Substance: ABATACEPT
     Indication: RHEUMATOID ARTHRITIS
     Dosage: EXP:JUL2016?3F76196 EXPDT:MAR16
     Route: 042
     Dates: start: 20120106
  3. CARBOCAL [Concomitant]
     Active Substance: CALCIUM CARBONATE
  4. ARAVA [Concomitant]
     Active Substance: LEFLUNOMIDE

REACTIONS (14)
  - Dry skin [Not Recovered/Not Resolved]
  - Oropharyngeal pain [Unknown]
  - Lacrimation increased [Unknown]
  - Vertigo [Unknown]
  - Pain in extremity [Unknown]
  - Cerebrovascular accident [Unknown]
  - Blood cholesterol increased [Unknown]
  - Hypoglycaemia [Unknown]
  - Nasal congestion [Not Recovered/Not Resolved]
  - Skin lesion [Unknown]
  - Dry eye [Unknown]
  - Hypertension [Unknown]
  - Fatigue [Unknown]
  - Cardiac disorder [Unknown]

NARRATIVE: CASE EVENT DATE: 2014
